FAERS Safety Report 7875567-1 (Version None)
Quarter: 2011Q4

REPORT INFORMATION
  Report Type: 
  Country: None (occurrence: None)
  Receive Date: 20111031
  Receipt Date: 20111020
  Transmission Date: 20120403
  Serious: Yes (Hospitalization, Other)
  Sender: FDA-Public Use
  Company Number: US-BAYER-2011-102482

PATIENT
  Sex: Female

DRUGS (4)
  1. ALTACE [Concomitant]
     Indication: HYPERTENSION
  2. LATEX PATCHES [Concomitant]
  3. LORAZEPAM [Concomitant]
     Indication: PRODUCT USED FOR UNKNOWN INDICATION
     Dosage: UNK
  4. ASPIRIN [Suspect]

REACTIONS (3)
  - RESPIRATORY ARREST [None]
  - ENCEPHALITIS [None]
  - CEREBROVASCULAR ACCIDENT [None]
